FAERS Safety Report 10420189 (Version 1)
Quarter: 2014Q3

REPORT INFORMATION
  Report Type: Report from Study
  Country: US (occurrence: None)
  Receive Date: 20140804
  Receipt Date: 20140804
  Transmission Date: 20150326
  Serious: Yes (Hospitalization)
  Sender: FDA-Public Use
  Company Number: 2013US008708

PATIENT
  Age: 43 Year
  Sex: Female
  Weight: 57.1 kg

DRUGS (7)
  1. ALBUTEROL /00139501/ (SALBUTAMOL) [Concomitant]
  2. GLASSIA [Suspect]
     Active Substance: .ALPHA.1-PROTEINASE INHIBITOR HUMAN
     Indication: ALPHA-1 ANTI-TRYPSIN DEFICIENCY
     Route: 042
     Dates: start: 2011
  3. SYMBICORT (BUDESONIDE, FORMOTEROL, FUMARATE) [Concomitant]
  4. DELTASONE /00044701/ (PREDNISONE) [Concomitant]
  5. HABITROL /01033301/ (NICOTINE) [Concomitant]
  6. DULERA (FORMOTEROL FUMARATE, MOMETASONE FUROATE) [Concomitant]
  7. OXYGEN (OXYGEN) [Concomitant]
     Active Substance: OXYGEN

REACTIONS (6)
  - Back pain [None]
  - Chronic obstructive pulmonary disease [None]
  - Chest pain [None]
  - Decreased appetite [None]
  - Emphysema [None]
  - Weight increased [None]

NARRATIVE: CASE EVENT DATE: 20130217
